FAERS Safety Report 5478803-4 (Version None)
Quarter: 2007Q4

REPORT INFORMATION
  Report Type: 
  Country: None (occurrence: None)
  Receive Date: 20071002
  Receipt Date: 20070809
  Transmission Date: 20080405
  Serious: Yes (Hospitalization)
  Sender: FDA-Public Use
  Company Number: 2007US001900

PATIENT
  Age: 17 Year
  Sex: Male
  Weight: 64 kg

DRUGS (11)
  1. PROGRAF [Suspect]
     Indication: RENAL TRANSPLANT
     Dates: start: 20051102
  2. DACLIZUMAB [Suspect]
     Indication: RENAL TRANSPLANT
     Dosage: 104 MG, IV DRIP
     Route: 041
     Dates: start: 20051102, end: 20051102
  3. ZANTAC 150 [Concomitant]
  4. CELLCEPT [Concomitant]
  5. BACTRIM          (TRIMETHOPRIM) [Concomitant]
  6. NYSTATIN [Concomitant]
  7. EPOGEN [Concomitant]
  8. METHYLPREDNISOLONE [Concomitant]
  9. TRILEPTAL [Concomitant]
  10. THYMOGLOBULIN [Concomitant]
  11. RAPAMUNE [Concomitant]

REACTIONS (1)
  - KIDNEY TRANSPLANT REJECTION [None]
